FAERS Safety Report 10273062 (Version 1)
Quarter: 2014Q2

REPORT INFORMATION
  Report Type: Spontaneous
  Country: US (occurrence: None)
  Receive Date: 20140630
  Receipt Date: 20140630
  Transmission Date: 20141212
  Serious: Yes (Life-Threatening, Other)
  Sender: FDA-Public Use
  Company Number: None

PATIENT
  Age: 24 Year
  Sex: Female
  Weight: 58.97 kg

DRUGS (1)
  1. BEYAZ [Suspect]
     Indication: CONTRACEPTION
     Dosage: 1 PILL ONCE DAILY TAKEN BY MOUTH
     Route: 048
     Dates: start: 20140622, end: 20140627

REACTIONS (12)
  - Heart rate increased [None]
  - Arrhythmia [None]
  - Eye pruritus [None]
  - Ocular hyperaemia [None]
  - Nausea [None]
  - Hypersensitivity [None]
  - Tremor [None]
  - Anxiety [None]
  - Dyspnoea [None]
  - Impaired work ability [None]
  - Hypokalaemia [None]
  - Palpitations [None]
